FAERS Safety Report 7381486-X (Version None)
Quarter: 2011Q1

REPORT INFORMATION
  Report Type: 
  Country: None (occurrence: None)
  Receive Date: 20110329
  Receipt Date: 20110321
  Transmission Date: 20110831
  Serious: Yes (Hospitalization, Disabling)
  Sender: FDA-Public Use
  Company Number: US-MERCK-1012USA02293

PATIENT
  Age: 66 Year
  Sex: Female

DRUGS (7)
  1. FOSAMAX [Suspect]
     Indication: OSTEOPOROSIS
     Route: 048
     Dates: start: 20030101
  2. SIMVASTATIN [Concomitant]
     Indication: BLOOD CHOLESTEROL INCREASED
     Route: 065
  3. FOSAMAX [Suspect]
     Indication: OSTEOPENIA
     Route: 048
     Dates: start: 20030101
  4. LISINOPRIL [Concomitant]
     Indication: HYPERTENSION
     Route: 065
  5. DIOVAN [Concomitant]
     Route: 065
  6. ASPIRIN [Concomitant]
     Route: 065
  7. NORVASC [Concomitant]
     Indication: HYPERTENSION
     Route: 065

REACTIONS (6)
  - FEMUR FRACTURE [None]
  - FALL [None]
  - STRESS FRACTURE [None]
  - BURSITIS [None]
  - OSTEOPOROSIS [None]
  - LOW TURNOVER OSTEOPATHY [None]
